FAERS Safety Report 16591603 (Version 1)
Quarter: 2019Q3

REPORT INFORMATION
  Report Type: Spontaneous
  Country: DE (occurrence: DE)
  Receive Date: 20190718
  Receipt Date: 20190718
  Transmission Date: 20191004
  Serious: Yes (Hospitalization)
  Sender: FDA-Public Use
  Company Number: DE-PFIZER INC-2019302417

PATIENT
  Age: 79 Year
  Sex: Male

DRUGS (8)
  1. XARELTO [Suspect]
     Active Substance: RIVAROXABAN
     Dosage: 15 MG, 1X/DAY(1-0-0-0)
  2. DAFIRO [Concomitant]
     Active Substance: AMLODIPINE\VALSARTAN
     Dosage: 5MG/160MG
  3. NOVONORM [Concomitant]
     Active Substance: REPAGLINIDE
     Dosage: 1 MG, 2X/DAY 1-1-0-0
  4. ALNA [Concomitant]
     Active Substance: TAMSULOSIN HYDROCHLORIDE
     Dosage: 0.4 MG, 1X/DAY 1-0-0-0
  5. METOPROLOL. [Concomitant]
     Active Substance: METOPROLOL
     Dosage: UNK, 2X/DAY 1-0-1-0
  6. IBUPROFEN. [Suspect]
     Active Substance: IBUPROFEN
     Dosage: UP TO 6 X DAILY
  7. DIGITOXIN [Concomitant]
     Active Substance: DIGITOXIN
     Dosage: 0.07 MG, 1X/DAY 1-0-0-0
  8. KOMBOGLYZE [Concomitant]
     Active Substance: METFORMIN HYDROCHLORIDE\SAXAGLIPTIN
     Dosage: 1 DF, 2X/DAY 1-0-1-0 2,5MG/850MG

REACTIONS (4)
  - Haematochezia [Unknown]
  - Nausea [Unknown]
  - Abdominal pain lower [Unknown]
  - Haematemesis [Unknown]
